FAERS Safety Report 13765268 (Version 4)
Quarter: 2017Q3

REPORT INFORMATION
  Report Type: Spontaneous
  Country: IT (occurrence: IT)
  Receive Date: 20170718
  Receipt Date: 20170731
  Transmission Date: 20171127
  Serious: Yes (Death, Hospitalization)
  Sender: FDA-Public Use
  Company Number: IT-SA-2017SA129040

PATIENT
  Age: 40 Year
  Sex: Male

DRUGS (2)
  1. NEBIVOLOL. [Concomitant]
     Active Substance: NEBIVOLOL
     Indication: AORTIC STENOSIS
     Route: 048
     Dates: start: 20170206, end: 20170709
  2. AUBAGIO [Suspect]
     Active Substance: TERIFLUNOMIDE
     Indication: MULTIPLE SCLEROSIS
     Route: 048
     Dates: start: 20141217, end: 20170709

REACTIONS (10)
  - Asthenia [Fatal]
  - Dyspnoea [Fatal]
  - Pneumonia legionella [Fatal]
  - Nausea [Fatal]
  - Neutrophilia [Unknown]
  - Respiratory failure [Fatal]
  - Cardiac arrest [Fatal]
  - Pyrexia [Fatal]
  - Vomiting [Fatal]
  - Diarrhoea [Fatal]

NARRATIVE: CASE EVENT DATE: 20170705
